FAERS Safety Report 9715433 (Version 1)
Quarter: 2013Q4

REPORT INFORMATION
  Report Type: Spontaneous
  Country: IT (occurrence: IT)
  Receive Date: 20131127
  Receipt Date: 20131127
  Transmission Date: 20140711
  Serious: Yes (Life-Threatening)
  Sender: FDA-Public Use
  Company Number: IT-ROCHE-1309376

PATIENT
  Age: 66 Year
  Sex: Female

DRUGS (4)
  1. AVASTIN [Suspect]
     Indication: RECTAL CANCER STAGE IV
     Route: 042
     Dates: start: 20130411, end: 20130904
  2. OXALIPLATIN [Concomitant]
  3. FLUOROURACIL [Concomitant]
  4. FOLIC ACID [Concomitant]

REACTIONS (1)
  - Aortic dissection [Recovered/Resolved with Sequelae]
